FAERS Safety Report 24923891 (Version 3)
Quarter: 2025Q1

REPORT INFORMATION
  Report Type: Spontaneous
  Country: US (occurrence: US)
  Receive Date: 20250204
  Receipt Date: 20250317
  Transmission Date: 20250409
  Serious: No
  Sender: PFIZER
  Company Number: US-PFIZER INC-PV202500012324

PATIENT
  Age: 55 Year
  Sex: Female
  Weight: 74.4 kg

DRUGS (8)
  1. SOLU-MEDROL [Suspect]
     Active Substance: METHYLPREDNISOLONE SODIUM SUCCINATE
     Indication: Pneumonitis
     Dosage: 40 MG, 3X/DAY (EVERY 8 HOURS)
     Route: 042
     Dates: start: 20250119, end: 20250125
  2. SOLU-MEDROL [Suspect]
     Active Substance: METHYLPREDNISOLONE SODIUM SUCCINATE
     Dosage: 60 MG, 4X/DAY (EVERY 6 HOURS)
     Route: 042
     Dates: start: 20250126
  3. OXYGEN [Concomitant]
     Active Substance: OXYGEN
     Indication: Pneumonitis
     Dates: start: 20250119
  4. ZOSYN [Concomitant]
     Active Substance: PIPERACILLIN SODIUM\TAZOBACTAM SODIUM
     Route: 042
     Dates: start: 20250119
  5. AZITHROMYCIN [Concomitant]
     Active Substance: AZITHROMYCIN
     Route: 042
     Dates: start: 20250115
  6. BACTRIM [Concomitant]
     Active Substance: SULFAMETHOXAZOLE\TRIMETHOPRIM
     Indication: Pneumonitis
     Dosage: UNK, DAILY
     Route: 042
     Dates: start: 20250126
  7. LASIX [Concomitant]
     Active Substance: FUROSEMIDE
     Dosage: UNK, 2X/DAY
     Dates: start: 20250128
  8. CELLCEPT [Concomitant]
     Active Substance: MYCOPHENOLATE MOFETIL
     Indication: Pneumonitis
     Dosage: 500 MG, 2X/DAY

REACTIONS (2)
  - Drug ineffective for unapproved indication [Unknown]
  - Off label use [Unknown]

NARRATIVE: CASE EVENT DATE: 20250101
